FAERS Safety Report 9302923 (Version 4)
Quarter: 2013Q4

REPORT INFORMATION
  Report Type: Spontaneous
  Country: CA (occurrence: CA)
  Receive Date: 20130522
  Receipt Date: 20131029
  Transmission Date: 20140711
  Serious: Yes (Other)
  Sender: FDA-Public Use
  Company Number: CA-BAYER-2013-060346

PATIENT
  Sex: Female

DRUGS (1)
  1. BETASERON [Suspect]
     Indication: MULTIPLE SCLEROSIS
     Dosage: UNK
     Dates: start: 19970107

REACTIONS (11)
  - Multiple sclerosis relapse [None]
  - Subcutaneous haematoma [Recovering/Resolving]
  - Urinary tract infection [Recovered/Resolved]
  - Pain [None]
  - Hypersensitivity [None]
  - Puncture site pain [None]
  - Emotional disorder [None]
  - Injection site haematoma [None]
  - Injection site reaction [None]
  - Burning sensation [None]
  - Paraesthesia [Not Recovered/Not Resolved]
